FAERS Safety Report 5481242-3 (Version None)
Quarter: 2007Q4

REPORT INFORMATION
  Report Type: 
  Country: None (occurrence: None)
  Receive Date: 20071005
  Receipt Date: 20071005
  Transmission Date: 20080405
  Serious: Yes (Hospitalization)
  Sender: FDA-Public Use
  Company Number: None

PATIENT
  Sex: Male

DRUGS (2)
  1. OXALIPLATIN [Suspect]
     Indication: OESOPHAGEAL CARCINOMA
     Dosage: 130MG/M2 Q21 DAYS IV
     Route: 042
     Dates: start: 20070701
  2. CETUXIMAB 250MG/M2 [Suspect]
     Indication: OESOPHAGEAL CARCINOMA
     Dosage: WEEKLY IV
     Route: 042
     Dates: start: 20070701

REACTIONS (1)
  - ANAPHYLACTIC REACTION [None]
